FAERS Safety Report 7824935-2 (Version None)
Quarter: 2011Q4

REPORT INFORMATION
  Report Type: 
  Country: None (occurrence: None)
  Receive Date: 20111019
  Receipt Date: 20110223
  Transmission Date: 20120403
  Serious: No
  Sender: FDA-Public Use
  Company Number: US-BRISTOL-MYERS SQUIBB COMPANY-15582489

PATIENT
  Sex: Female

DRUGS (2)
  1. AVALIDE [Suspect]
  2. HYDROCHLOROTHIAZIDE [Suspect]

REACTIONS (1)
  - HYPERSENSITIVITY [None]
